FAERS Safety Report 24955277 (Version 1)
Quarter: 2025Q1

REPORT INFORMATION
  Report Type: Spontaneous
  Country: US (occurrence: US)
  Receive Date: 20250211
  Receipt Date: 20250211
  Transmission Date: 20250408
  Serious: Yes (Hospitalization)
  Sender: DR REDDYS
  Company Number: US-DRL-USA-USA/2025/02/002019

PATIENT
  Age: 41 Year
  Sex: Male

DRUGS (7)
  1. VALPROATE [Suspect]
     Active Substance: VALPROIC ACID
     Indication: Post-anoxic myoclonus
     Dosage: 500 MG DELAYED RELEASE?TWICE DAILY
  2. VALPROATE [Suspect]
     Active Substance: VALPROIC ACID
     Indication: Alcoholic seizure
     Dosage: 500 MG DELAYED RELEASE?TWICE DAILY
     Route: 048
  3. VALPROATE [Suspect]
     Active Substance: VALPROIC ACID
  4. LEVETIRACETAM [Suspect]
     Active Substance: LEVETIRACETAM
     Indication: Post-anoxic myoclonus
     Dosage: ORAL LEVETIRACETAM 500 MG TWICE DAILY
     Route: 048
  5. CLONAZEPAM [Suspect]
     Active Substance: CLONAZEPAM
     Indication: Post-anoxic myoclonus
     Dosage: CLONAZEPAM 0.5 MG TWICE DAILY
     Route: 048
  6. CLONAZEPAM [Suspect]
     Active Substance: CLONAZEPAM
     Indication: Alcoholic seizure
     Dosage: ORAL CLONAZEPAM 0.5MG TWICE DAILY
     Route: 048
  7. GABAPENTIN [Suspect]
     Active Substance: GABAPENTIN
     Indication: Post-anoxic myoclonus
     Dosage: ORAL GABAPENTIN 400 MG THRICE DAILY
     Route: 048

REACTIONS (4)
  - Treatment noncompliance [Unknown]
  - Drug ineffective for unapproved indication [Unknown]
  - Inappropriate schedule of product discontinuation [Unknown]
  - Product use in unapproved indication [Unknown]
